FAERS Safety Report 10364425 (Version 1)
Quarter: 2014Q3

REPORT INFORMATION
  Report Type: Report from Study
  Country: US (occurrence: US)
  Receive Date: 20140806
  Receipt Date: 20140806
  Transmission Date: 20150326
  Serious: Yes (Other)
  Sender: FDA-Public Use
  Company Number: US-ROCHE-1388438

PATIENT
  Sex: Male

DRUGS (9)
  1. INCIVEK [Suspect]
     Active Substance: TELAPREVIR
     Indication: HEPATITIS C
     Route: 065
  2. PEGASYS [Suspect]
     Active Substance: PEGINTERFERON ALFA-2A
     Indication: HEPATITIS C
     Dosage: 180 MCG/0.5ML
     Route: 058
  3. FAMOTIDINE. [Concomitant]
     Active Substance: FAMOTIDINE
     Dosage: ONE TWICE DAILY AS NEEDED
     Route: 065
     Dates: start: 20120119
  4. REGLAN [Concomitant]
     Active Substance: METOCLOPRAMIDE HYDROCHLORIDE
     Route: 065
     Dates: start: 20120119
  5. AMARYL [Concomitant]
     Active Substance: GLIMEPIRIDE
  6. COPEGUS [Suspect]
     Active Substance: RIBAVIRIN
     Indication: HEPATITIS C
     Dosage: 600 MG EVERY MORNING AND 600 MG EVERY NIGHT
     Route: 048
  7. PROMETHAZINE [Concomitant]
     Active Substance: PROMETHAZINE\PROMETHAZINE HYDROCHLORIDE
     Dosage: 1 EVERY 6-8 HOURS AS NEEDED FOR NAUSEA/VOMITING
     Route: 065
     Dates: start: 20111206
  8. METFORMIN HYDROCHLORIDE. [Concomitant]
     Active Substance: METFORMIN HYDROCHLORIDE
     Route: 065
  9. LANTUS [Concomitant]
     Active Substance: INSULIN GLARGINE

REACTIONS (9)
  - Pancytopenia [Unknown]
  - Hunger [Unknown]
  - Anaemia [Recovering/Resolving]
  - Abdominal discomfort [Unknown]
  - Neutropenia [Unknown]
  - Vomiting [Unknown]
  - Hepatic enzyme increased [Unknown]
  - Pruritus [Unknown]
  - Nausea [Unknown]
